FAERS Safety Report 14692456 (Version 1)
Quarter: 2018Q1

REPORT INFORMATION
  Report Type: Spontaneous
  Country: AU (occurrence: AU)
  Receive Date: 20180329
  Receipt Date: 20180329
  Transmission Date: 20180509
  Serious: Yes (Hospitalization)
  Sender: FDA-Public Use
  Company Number: AU-NAPPMUNDI-GBR-2018-0054315

PATIENT
  Age: 52 Year
  Sex: Male

DRUGS (2)
  1. ROSUVASTATIN. [Concomitant]
     Active Substance: ROSUVASTATIN
  2. NORSPAN [Suspect]
     Active Substance: BUPRENORPHINE
     Indication: MUSCULOSKELETAL PAIN
     Dosage: 40 MCG, Q1H
     Route: 062

REACTIONS (3)
  - Application site burn [Not Recovered/Not Resolved]
  - Bacterial infection [Not Recovered/Not Resolved]
  - Application site vesicles [Not Recovered/Not Resolved]
